FAERS Safety Report 11176502 (Version 3)
Quarter: 2015Q3

REPORT INFORMATION
  Report Type: Spontaneous
  Country: CA (occurrence: CA)
  Receive Date: 20150610
  Receipt Date: 20150825
  Transmission Date: 20151125
  Serious: Yes (Other)
  Sender: FDA-Public Use
  Company Number: CA-ROCHE-1591119

PATIENT
  Age: 58 Year
  Sex: Male

DRUGS (10)
  1. SALBUTAMOL [Concomitant]
     Active Substance: ALBUTEROL
  2. MOMETASONE [Concomitant]
     Active Substance: MOMETASONE
  3. PANTOPRAZOLE [Concomitant]
     Active Substance: PANTOPRAZOLE SODIUM
  4. XOLAIR [Suspect]
     Active Substance: OMALIZUMAB
     Indication: ASTHMA
     Route: 058
     Dates: start: 20110525
  5. ADVAIR HFA [Concomitant]
     Active Substance: FLUTICASONE PROPIONATE\SALMETEROL XINAFOATE
  6. MONTELUKAST [Concomitant]
     Active Substance: MONTELUKAST SODIUM
  7. PULMICORT TURBUHALER [Concomitant]
     Active Substance: BUDESONIDE
  8. VENTOLIN [Concomitant]
     Active Substance: ALBUTEROL SULFATE
  9. BUDESONIDE. [Concomitant]
     Active Substance: BUDESONIDE
  10. BIAXIN [Concomitant]
     Active Substance: CLARITHROMYCIN

REACTIONS (8)
  - Asthma [Unknown]
  - Obstructive airways disorder [Unknown]
  - Weight decreased [Unknown]
  - Dyspepsia [Unknown]
  - Feeling abnormal [Unknown]
  - Nasal polyps [Unknown]
  - Sinusitis fungal [Unknown]
  - Weight increased [Unknown]

NARRATIVE: CASE EVENT DATE: 20141203
